FAERS Safety Report 5008018-5 (Version None)
Quarter: 2006Q2

REPORT INFORMATION
  Report Type: 
  Country: None (occurrence: None)
  Receive Date: 20060404
  Receipt Date: 20050506
  Transmission Date: 20061013
  Serious: Yes (Hospitalization, Other)
  Sender: FDA-Public Use
  Company Number: 2005063055

PATIENT
  Age: 26 Year
  Sex: Male

DRUGS (4)
  1. GEODON [Suspect]
     Indication: HALLUCINATION, AUDITORY
     Dosage: 80 MG (40 MG, 2 IN 1 D), ORAL
     Route: 048
  2. GEODON [Suspect]
     Indication: POST-TRAUMATIC STRESS DISORDER
     Dosage: 80 MG (40 MG, 2 IN 1 D), ORAL
     Route: 048
  3. GEODON [Suspect]
     Indication: PSYCHOTIC DISORDER
     Dosage: 80 MG (40 MG, 2 IN 1 D), ORAL
     Route: 048
  4. RISPERDAL [Suspect]
     Indication: ILL-DEFINED DISORDER
     Dosage: ORAL
     Route: 048

REACTIONS (3)
  - ADVERSE EVENT [None]
  - PSYCHOTIC DISORDER [None]
  - SEXUAL DYSFUNCTION [None]
